FAERS Safety Report 7575432-3 (Version None)
Quarter: 2011Q2

REPORT INFORMATION
  Report Type: 
  Country: None (occurrence: None)
  Receive Date: 20110627
  Receipt Date: 20110621
  Transmission Date: 20111010
  Serious: Yes (Hospitalization, Other)
  Sender: FDA-Public Use
  Company Number: KR-PFIZER INC-2011130708

PATIENT
  Age: 75 Year
  Sex: Male

DRUGS (2)
  1. TORISEL [Suspect]
     Indication: METASTATIC RENAL CELL CARCINOMA
     Dosage: 25 MG, WEEKLY
     Route: 042
  2. DOBUTAMINE [Concomitant]
     Indication: STRESS ECHOCARDIOGRAM

REACTIONS (1)
  - ANGINA PECTORIS [None]
